FAERS Safety Report 5843600-4 (Version None)
Quarter: 2008Q3

REPORT INFORMATION
  Report Type: 
  Country: None (occurrence: None)
  Receive Date: 20080813
  Receipt Date: 20080606
  Transmission Date: 20090109
  Serious: No
  Sender: FDA-Public Use
  Company Number: A0731761A

PATIENT
  Age: 82 Year
  Sex: Male

DRUGS (11)
  1. COREG CR [Suspect]
     Indication: HYPERTENSION
     Dosage: 80MG PER DAY
     Route: 048
     Dates: start: 20080501, end: 20080501
  2. LEVOTHYROXINE SODIUM [Concomitant]
  3. FUROSEMIDE [Concomitant]
  4. FLOMAX [Concomitant]
  5. TRICOR [Concomitant]
  6. POTASSIUM SUPPLEMENT [Concomitant]
  7. ZETIA [Concomitant]
  8. DIOVAN [Concomitant]
  9. WARFARIN SODIUM [Concomitant]
  10. PROSCAR [Concomitant]
  11. DIGOXIN [Concomitant]

REACTIONS (1)
  - BLOOD PRESSURE INCREASED [None]
